FAERS Safety Report 14761691 (Version 1)
Quarter: 2018Q2

REPORT INFORMATION
  Report Type: Spontaneous
  Country: DE (occurrence: DE)
  Receive Date: 20180416
  Receipt Date: 20180416
  Transmission Date: 20180711
  Serious: Yes (Hospitalization, Other)
  Sender: FDA-Public Use
  Company Number: DE-CONCORDIA PHARMACEUTICALS INC.-E2B_00011088

PATIENT
  Sex: Female

DRUGS (26)
  1. PREDNISOLONE. [Suspect]
     Active Substance: PREDNISOLONE
     Dosage: UNK, QD
     Dates: start: 20160219
  2. VINCRISTINE [Suspect]
     Active Substance: VINCRISTINE
     Dosage: UNK, QD
     Dates: start: 20151202
  3. DOXORUBICIN [Suspect]
     Active Substance: DOXORUBICIN
     Indication: B-CELL LYMPHOMA
     Dosage: UNK, QD
     Route: 042
     Dates: start: 20151231
  4. CERTOPARIN SODIUM [Concomitant]
     Active Substance: CERTOPARIN SODIUM
     Dosage: UNK UNK, QD, (DAILY DOSE: 3000, I.E/0.3 ML)
  5. VINCRISTINE [Suspect]
     Active Substance: VINCRISTINE
     Indication: B-CELL LYMPHOMA
     Dosage: UNK, QD
     Route: 042
     Dates: start: 20151231
  6. PEGFILGRASTIM [Suspect]
     Active Substance: PEGFILGRASTIM
     Indication: B-CELL LYMPHOMA
     Dosage: UNK UNK, QD
     Route: 058
     Dates: start: 20160220, end: 20160220
  7. PREDNISOLONE. [Suspect]
     Active Substance: PREDNISOLONE
     Indication: B-CELL LYMPHOMA
     Dosage: UNK UNK, QD FOR 5 DAYS
     Route: 048
     Dates: start: 20151231, end: 20160104
  8. CYCLOPHOSPHAMIDE. [Suspect]
     Active Substance: CYCLOPHOSPHAMIDE
     Dosage: UNK, QD
     Dates: start: 20151231
  9. RITUXIMAB. [Suspect]
     Active Substance: RITUXIMAB
     Indication: B-CELL LYMPHOMA
     Dosage: 773 MG, UNK
     Route: 042
     Dates: start: 20151126
  10. PEGFILGRASTIM [Suspect]
     Active Substance: PEGFILGRASTIM
     Dosage: 6 MG, QD
     Dates: start: 20160104, end: 20160104
  11. KALIUMCHLORIDE [Concomitant]
     Dosage: 600 MG, BID
  12. ACICLOVIR [Concomitant]
     Active Substance: ACYCLOVIR
     Dosage: 400 MG, QD
  13. CYCLOPHOSPHAMIDE. [Suspect]
     Active Substance: CYCLOPHOSPHAMIDE
     Indication: B-CELL LYMPHOMA
     Dosage: UNK, QD
     Route: 042
     Dates: start: 20160219
  14. DOXORUBICIN [Suspect]
     Active Substance: DOXORUBICIN
     Dosage: UNK, QD
     Dates: start: 20160219
  15. INDAPAMIDE. [Concomitant]
     Active Substance: INDAPAMIDE
     Dosage: 1.5 MG, QD
  16. CYCLOPHOSPHAMIDE. [Suspect]
     Active Substance: CYCLOPHOSPHAMIDE
     Dosage: UNK, QD
     Dates: start: 20151202
  17. RITUXIMAB. [Suspect]
     Active Substance: RITUXIMAB
     Dosage: 728 MG, QD
     Dates: start: 20160205
  18. TRAVOPROST. [Concomitant]
     Active Substance: TRAVOPROST
     Dosage: 0.04 MG/ML, QD
  19. PANTOPRAZOLE [Concomitant]
     Active Substance: PANTOPRAZOLE
     Dosage: 40 MG, QD
  20. VINCRISTINE [Suspect]
     Active Substance: VINCRISTINE
     Dosage: UNK
     Dates: start: 20160219
  21. DOXORUBICIN [Suspect]
     Active Substance: DOXORUBICIN
     Dosage: UNK, QD
     Dates: start: 20151202
  22. SIMVASTATIN. [Concomitant]
     Active Substance: SIMVASTATIN
     Dosage: 20 MG, QD
  23. SULFAMETHOXAZOLE W/TRIMETHOPRIM [Concomitant]
     Active Substance: SULFAMETHOXAZOLE\TRIMETHOPRIM
     Dosage: 960 MG, QD
  24. PREDNISOLONE. [Suspect]
     Active Substance: PREDNISOLONE
     Dosage: 100 MG, QD
     Dates: start: 20151202, end: 20151206
  25. RITUXIMAB. [Suspect]
     Active Substance: RITUXIMAB
     Dosage: 728 MG, QD
     Dates: start: 20151230
  26. PEGFILGRASTIM [Suspect]
     Active Substance: PEGFILGRASTIM
     Dosage: 6 MG, QD
     Dates: start: 20151205, end: 20151205

REACTIONS (6)
  - Gastroenteritis [Recovered/Resolved]
  - Vomiting [Unknown]
  - Nausea [Unknown]
  - Gastroenteritis salmonella [Recovered/Resolved]
  - Neutropenic infection [Recovered/Resolved]
  - Neutrophil count decreased [Unknown]

NARRATIVE: CASE EVENT DATE: 20151210
